FAERS Safety Report 5316984-3 (Version None)
Quarter: 2007Q2

REPORT INFORMATION
  Report Type: 
  Country: None (occurrence: None)
  Receive Date: 20070504
  Receipt Date: 20070424
  Transmission Date: 20071010
  Serious: Yes (Hospitalization, Other)
  Sender: FDA-Public Use
  Company Number: HQWYE858826APR07

PATIENT
  Sex: Female
  Weight: 56.75 kg

DRUGS (2)
  1. EFFEXOR XR [Suspect]
     Indication: FEELING ABNORMAL
     Route: 048
     Dates: start: 20060801, end: 20070201
  2. ADDERALL 10 [Interacting]
     Indication: MENTAL IMPAIRMENT
     Dosage: UNKNOWN
     Dates: start: 20061001, end: 20070201

REACTIONS (15)
  - AGGRESSION [None]
  - BLOOD PRESSURE INCREASED [None]
  - DISTURBANCE IN ATTENTION [None]
  - DRUG EFFECT DECREASED [None]
  - DRUG INTERACTION [None]
  - FEELING ABNORMAL [None]
  - HEART RATE INCREASED [None]
  - HYPERSOMNIA [None]
  - INCOHERENT [None]
  - IRRITABILITY [None]
  - MANIA [None]
  - MEMORY IMPAIRMENT [None]
  - PARANOIA [None]
  - PSYCHOTIC DISORDER [None]
  - THINKING ABNORMAL [None]
